FAERS Safety Report 10634899 (Version 2)
Quarter: 2014Q4

REPORT INFORMATION
  Report Type: Spontaneous
  Country: US (occurrence: US)
  Receive Date: 20141205
  Receipt Date: 20141205
  Transmission Date: 20150529
  Serious: Yes (Death)
  Sender: FDA-Public Use
  Company Number: US-INCYTE CORPORATION-2014IN003344

PATIENT
  Sex: Female

DRUGS (28)
  1. MIRALAX [Concomitant]
     Active Substance: POLYETHYLENE GLYCOL 3350
  2. ACTONEL [Concomitant]
     Active Substance: RISEDRONATE SODIUM
  3. CALTRATE                           /00944201/ [Concomitant]
  4. KEPPRA [Concomitant]
     Active Substance: LEVETIRACETAM
  5. ALLOPURINOL. [Concomitant]
     Active Substance: ALLOPURINOL
  6. DERMOTIC [Concomitant]
     Active Substance: FLUOCINOLONE ACETONIDE
  7. HYDREA [Concomitant]
     Active Substance: HYDROXYUREA
  8. ZYRTEC [Concomitant]
     Active Substance: CETIRIZINE HYDROCHLORIDE
  9. SYNTHROID [Concomitant]
     Active Substance: LEVOTHYROXINE SODIUM
  10. VITAMIN D                          /00107901/ [Concomitant]
     Active Substance: ERGOCALCIFEROL
  11. DIOVAN [Concomitant]
     Active Substance: VALSARTAN
  12. FLOVENT [Concomitant]
     Active Substance: FLUTICASONE PROPIONATE
  13. ZOLPIDEM [Concomitant]
     Active Substance: ZOLPIDEM\ZOLPIDEM TARTRATE
  14. ONDANSETRON [Concomitant]
     Active Substance: ONDANSETRON
  15. SPIRIVA [Concomitant]
     Active Substance: TIOTROPIUM BROMIDE MONOHYDRATE
  16. KLONOPIN [Concomitant]
     Active Substance: CLONAZEPAM
  17. NITROFURANTOIN. [Concomitant]
     Active Substance: NITROFURANTOIN
  18. VAGIFEM [Concomitant]
     Active Substance: ESTRADIOL
  19. TRIAMCINOLONE [Concomitant]
     Active Substance: TRIAMCINOLONE
  20. FLONASE [Concomitant]
     Active Substance: FLUTICASONE PROPIONATE
  21. FUROSEMIDE                         /00032602/ [Concomitant]
     Active Substance: FUROSEMIDE
  22. JAKAFI [Suspect]
     Active Substance: RUXOLITINIB
     Indication: MYELOFIBROSIS
     Dosage: 10 MG, BID
     Route: 048
     Dates: start: 20140603
  23. PROCTOZONE HC [Concomitant]
     Active Substance: HYDROCORTISONE
  24. LEVAQUIN [Concomitant]
     Active Substance: LEVOFLOXACIN
  25. PRILOSEC [Concomitant]
     Active Substance: OMEPRAZOLE MAGNESIUM
  26. ALOMIDE                            /00997502/ [Concomitant]
  27. PROAIR HFA [Concomitant]
     Active Substance: ALBUTEROL SULFATE
  28. ZOLOFT [Concomitant]
     Active Substance: SERTRALINE HYDROCHLORIDE

REACTIONS (1)
  - Death [Fatal]
